FAERS Safety Report 5874854-6 (Version None)
Quarter: 2008Q3

REPORT INFORMATION
  Report Type: 
  Country: None (occurrence: None)
  Receive Date: 20080909
  Receipt Date: 20080828
  Transmission Date: 20090109
  Serious: Yes (Hospitalization)
  Sender: FDA-Public Use
  Company Number: SE-ASTRAZENECA-2008SE03022

PATIENT
  Age: 62 Year
  Sex: Male

DRUGS (4)
  1. ENTOCORT PROLONGED RELAESE CAPSULE HARD [Suspect]
     Indication: INFLAMMATORY BOWEL DISEASE
     Route: 048
     Dates: start: 20080501, end: 20080501
  2. PENTASA [Suspect]
     Indication: INFLAMMATORY BOWEL DISEASE
     Route: 048
     Dates: start: 20080501, end: 20080501
  3. FELODIPINE [Concomitant]
  4. ENALAPRIL MALEATE [Concomitant]

REACTIONS (1)
  - CHOLANGITIS [None]
